FAERS Safety Report 9127843 (Version 2)
Quarter: 2014Q1

REPORT INFORMATION
  Report Type: Spontaneous
  Country: US (occurrence: US)
  Receive Date: 20130228
  Receipt Date: 20140228
  Transmission Date: 20141002
  Serious: No
  Sender: FDA-Public Use
  Company Number: US-GLAXOSMITHKLINE-A1004101A

PATIENT
  Sex: Female

DRUGS (1)
  1. LAMICTAL [Suspect]
     Indication: BIPOLAR DISORDER

REACTIONS (3)
  - Ill-defined disorder [Not Recovered/Not Resolved]
  - Drug ineffective [Unknown]
  - Exposure during pregnancy [Unknown]
